FAERS Safety Report 17676177 (Version 1)
Quarter: 2020Q2

REPORT INFORMATION
  Report Type: Spontaneous
  Country: US (occurrence: US)
  Receive Date: 20200415
  Receipt Date: 20200415
  Transmission Date: 20200714
  Serious: Yes (Life-Threatening, Hospitalization)
  Sender: FDA-Public Use
  Company Number: None

PATIENT
  Age: 70 Year
  Sex: Male

DRUGS (1)
  1. VANCOMYCIN (VANCOMYCIN HCL 1GM/VIL INJ) [Suspect]
     Active Substance: VANCOMYCIN HYDROCHLORIDE
     Indication: CELLULITIS
     Route: 042
     Dates: start: 20190116, end: 20190128

REACTIONS (5)
  - Cellulitis [None]
  - Bacterial infection [None]
  - Tularaemia [None]
  - Thrombocytopenia [None]
  - Condition aggravated [None]

NARRATIVE: CASE EVENT DATE: 20190131
